FAERS Safety Report 5708181-4 (Version None)
Quarter: 2008Q2

REPORT INFORMATION
  Report Type: 
  Country: None (occurrence: None)
  Receive Date: 20080417
  Receipt Date: 20080411
  Transmission Date: 20081010
  Serious: Yes (Death)
  Sender: FDA-Public Use
  Company Number: B0516934A

PATIENT
  Age: 50 Year
  Sex: Male

DRUGS (1)
  1. ARIXTRA [Suspect]
     Indication: PHLEBITIS
     Dosage: 7.5MG PER DAY
     Route: 065
     Dates: start: 20080401

REACTIONS (2)
  - DEATH [None]
  - NO THERAPEUTIC RESPONSE [None]
